FAERS Safety Report 5746588-X (Version None)
Quarter: 2008Q2

REPORT INFORMATION
  Report Type: 
  Country: None (occurrence: None)
  Receive Date: 20080522
  Receipt Date: 20080516
  Transmission Date: 20081010
  Serious: Yes (Hospitalization)
  Sender: FDA-Public Use
  Company Number: US-MERCK-0805USA03912

PATIENT
  Age: 49 Year
  Sex: Female

DRUGS (2)
  1. JANUVIA [Suspect]
     Indication: TYPE 2 DIABETES MELLITUS
     Route: 048
     Dates: start: 20070523, end: 20070606
  2. GLUCOFAGE [Concomitant]
     Route: 065

REACTIONS (3)
  - ACNE [None]
  - CHEST DISCOMFORT [None]
  - PRURITUS [None]
